FAERS Safety Report 5929105-0 (Version None)
Quarter: 2008Q4

REPORT INFORMATION
  Report Type: 
  Country: None (occurrence: None)
  Receive Date: 20081024
  Receipt Date: 20081016
  Transmission Date: 20090506
  Serious: Yes (Hospitalization)
  Sender: FDA-Public Use
  Company Number: DK-BAXTER-2008BH011051

PATIENT
  Age: 62 Year
  Sex: Female

DRUGS (2)
  1. ENDOXAN BAXTER [Suspect]
     Indication: WEGENER'S GRANULOMATOSIS
     Dosage: DOSE UNIT:UNKNOWN
     Route: 065
     Dates: start: 20050908, end: 20051101
  2. PREDNISOLONE [Concomitant]
     Indication: WEGENER'S GRANULOMATOSIS
     Dates: start: 20050908

REACTIONS (2)
  - ATRIAL FIBRILLATION [None]
  - PULMONARY FUNCTION TEST DECREASED [None]
